FAERS Safety Report 9177715 (Version 1)
Quarter: 2013Q1

REPORT INFORMATION
  Report Type: Spontaneous
  Country: US (occurrence: US)
  Receive Date: 20130321
  Receipt Date: 20130321
  Transmission Date: 20140127
  Serious: No
  Sender: FDA-Public Use
  Company Number: US-BAYER-2013-035240

PATIENT
  Age: 63 Year
  Sex: Female
  Weight: 56.69 kg

DRUGS (15)
  1. BETASERON [Suspect]
     Dosage: 0.3 MG, QOD
     Route: 058
  2. CYMBALTA [Concomitant]
     Dosage: 20 MG, UNK
     Route: 048
  3. KLONOPIN [Concomitant]
     Dosage: 0.5 MG, UNK
     Route: 048
  4. XANAX [Concomitant]
     Dosage: 0.25 MG, UNK
     Route: 048
  5. LIPITOR [Concomitant]
     Dosage: 10 MG, UNK
     Route: 048
  6. NEURONTIN [Concomitant]
     Dosage: 100 MG, UNK
     Route: 048
  7. BACLOFEN [Concomitant]
     Dosage: 10 MG, UNK
     Route: 048
  8. WELLBUTRIN [Concomitant]
     Dosage: 150 MG, UNK
     Route: 048
  9. NEXIUM [Concomitant]
     Dosage: 20 MG, UNK
     Route: 048
  10. CALCIUM [CALCIUM] [Concomitant]
     Dosage: 500 MG, UNK
     Route: 048
  11. ADDERALL [Concomitant]
     Dosage: 10 MG, UNK
     Route: 048
  12. MULTIVITAMIN [Concomitant]
     Route: 048
  13. TYLENOL [PARACETAMOL] [Concomitant]
     Dosage: 325 MG, UNK
     Route: 048
  14. ASPIRIN [Concomitant]
     Dosage: 81 MG, UNK
     Route: 048
  15. ADDERALL [Concomitant]
     Dosage: 10 MG, UNK
     Route: 048

REACTIONS (1)
  - Injection site erythema [Unknown]
